FAERS Safety Report 4433198-X (Version None)
Quarter: 2004Q3

REPORT INFORMATION
  Report Type: 
  Country: None (occurrence: None)
  Receive Date: 20040823
  Receipt Date: 20040811
  Transmission Date: 20050211
  Serious: Yes (Other)
  Sender: FDA-Public Use
  Company Number: 24874

PATIENT
  Sex: Female

DRUGS (1)
  1. ALDARA [Suspect]
     Indication: ACTINIC KERATOSIS
     Dosage: (3 IN 1 WEEK (S))
     Route: 061
     Dates: start: 20040705, end: 20040707

REACTIONS (1)
  - HYPERSENSITIVITY [None]
